FAERS Safety Report 7769502-4 (Version None)
Quarter: 2011Q3

REPORT INFORMATION
  Report Type: 
  Country: None (occurrence: None)
  Receive Date: 20110922
  Receipt Date: 20110722
  Transmission Date: 20111222
  Serious: No
  Sender: FDA-Public Use
  Company Number: US-ASTRAZENECA-2011SE44052

PATIENT
  Age: 58 Year
  Sex: Female

DRUGS (5)
  1. SEROQUEL [Suspect]
     Dosage: 50 MG AT NIGHT AND 25 MG DURING THE DAY
     Route: 048
  2. SEROQUEL [Suspect]
     Indication: ANXIETY
     Route: 048
     Dates: start: 20100101
  3. PROZAC [Concomitant]
  4. HIGH BLOOD PRESSURE MEDS [Concomitant]
  5. THYROID MEDICATION [Concomitant]

REACTIONS (6)
  - INSOMNIA [None]
  - INCORRECT DOSE ADMINISTERED [None]
  - FEELING OF DESPAIR [None]
  - DEPRESSION [None]
  - ANXIETY [None]
  - MUSCLE SPASMS [None]
